FAERS Safety Report 13175288 (Version 5)
Quarter: 2017Q1

REPORT INFORMATION
  Report Type: Report from Study
  Country: DE (occurrence: DE)
  Receive Date: 20170201
  Receipt Date: 20170322
  Transmission Date: 20170428
  Serious: Yes (Hospitalization)
  Sender: FDA-Public Use
  Company Number: DE-JNJFOC-20170123979

PATIENT
  Age: 75 Year
  Sex: Male
  Weight: 94 kg

DRUGS (8)
  1. OFATUMUMAB [Suspect]
     Active Substance: OFATUMUMAB
     Indication: CHRONIC LYMPHOCYTIC LEUKAEMIA
     Route: 042
     Dates: start: 20160712
  2. TAMSULOSIN [Concomitant]
     Active Substance: TAMSULOSIN
     Route: 048
     Dates: start: 20090909
  3. TELMISARTAN. [Concomitant]
     Active Substance: TELMISARTAN
     Route: 048
     Dates: start: 20170126
  4. BERODUAL [Concomitant]
     Active Substance: FENOTEROL HYDROBROMIDE\IPRATROPIUM BROMIDE
     Route: 050
     Dates: start: 20090109
  5. BENDAMUSTINE [Suspect]
     Active Substance: BENDAMUSTINE
     Indication: CHRONIC LYMPHOCYTIC LEUKAEMIA
     Route: 042
     Dates: start: 20160517
  6. VIANI [Concomitant]
     Active Substance: FLUTICASONE PROPIONATE\SALMETEROL XINAFOATE
     Route: 050
     Dates: start: 20170109
  7. TORASEMID [Concomitant]
     Active Substance: TORSEMIDE
     Route: 048
     Dates: start: 20090909, end: 20170125
  8. IBRUTINIB [Suspect]
     Active Substance: IBRUTINIB
     Indication: CHRONIC LYMPHOCYTIC LEUKAEMIA
     Dosage: DATE OF LAST DOSE PRIOR TO SAE: 25-JAN-2017
     Route: 048
     Dates: start: 20160810, end: 20170125

REACTIONS (2)
  - Fall [Unknown]
  - Syncope [Unknown]

NARRATIVE: CASE EVENT DATE: 20170126
